FAERS Safety Report 21502986 (Version 2)
Quarter: 2023Q2

REPORT INFORMATION
  Report Type: Report from Study
  Country: US (occurrence: US)
  Receive Date: 20221025
  Receipt Date: 20230630
  Transmission Date: 20230721
  Serious: Yes (Hospitalization)
  Sender: FDA-Public Use
  Company Number: US-GW PHARMA-2022-US-033252

PATIENT
  Sex: Male
  Weight: 9.977 kg

DRUGS (1)
  1. EPIDIOLEX [Suspect]
     Active Substance: CANNABIDIOL
     Indication: Infantile spasms
     Dosage: 2 MILLILITER
     Route: 048
     Dates: start: 20220512

REACTIONS (2)
  - Hospitalisation [Unknown]
  - Off label use [Unknown]
